FAERS Safety Report 4971525-5 (Version None)
Quarter: 2006Q2

REPORT INFORMATION
  Report Type: 
  Country: None (occurrence: None)
  Receive Date: 20060413
  Receipt Date: 20060403
  Transmission Date: 20061013
  Serious: Yes (Hospitalization)
  Sender: FDA-Public Use
  Company Number: GR-BRISTOL-MYERS SQUIBB COMPANY-13333505

PATIENT
  Age: 60 Year
  Sex: Male

DRUGS (1)
  1. PROCEF TABS 500 MG [Suspect]
     Indication: NASAL OPERATION
     Route: 048
     Dates: start: 20060327, end: 20060401

REACTIONS (2)
  - RASH [None]
  - TOXIC EPIDERMAL NECROLYSIS [None]
